FAERS Safety Report 8506293-3 (Version None)
Quarter: 2012Q3

REPORT INFORMATION
  Report Type: 
  Country: None (occurrence: None)
  Receive Date: 20120712
  Receipt Date: 20100422
  Transmission Date: 20120928
  Serious: Yes (Hospitalization)
  Sender: FDA-Public Use
  Company Number: GR-ROCHE-1086156

PATIENT
  Age: 75 Year
  Sex: Male

DRUGS (6)
  1. IRINOTECAN HCL [Suspect]
     Indication: RECTAL CANCER
     Dates: start: 20090901, end: 20091201
  2. AVASTIN [Suspect]
     Indication: RECTAL CANCER
     Dates: start: 20090216, end: 20090828
  3. XELODA [Suspect]
     Dosage: FOR 14 DAYS, EVERY 1 WEEK
     Dates: start: 20090901, end: 20091201
  4. XELODA [Suspect]
     Indication: RECTAL CANCER
     Dosage: FOR 14 DAYS, EVERY 1 WEEK
     Dates: start: 20090216, end: 20090828
  5. AVASTIN [Suspect]
     Dates: start: 20090901, end: 20091201
  6. OXALIPLATIN [Suspect]
     Indication: RECTAL CANCER
     Dates: start: 20090216, end: 20090828

REACTIONS (2)
  - METASTASES TO LUNG [None]
  - CONSTIPATION [None]
